FAERS Safety Report 15167358 (Version 8)
Quarter: 2019Q2

REPORT INFORMATION
  Report Type: Report from Study
  Country: US (occurrence: US)
  Receive Date: 20180719
  Receipt Date: 20190624
  Transmission Date: 20190711
  Serious: No
  Sender: FDA-Public Use
  Company Number: PHEH2018US029639

PATIENT
  Age: 8 Year
  Sex: Female

DRUGS (2)
  1. TYLENOL [Suspect]
     Active Substance: ACETAMINOPHEN
     Indication: PRODUCT USED FOR UNKNOWN INDICATION
     Dosage: UNK UNK, PRN
     Route: 065
  2. ILARIS [Suspect]
     Active Substance: CANAKINUMAB
     Indication: STILL^S DISEASE
     Dosage: 200 MG, Q4W
     Route: 058
     Dates: start: 20180616

REACTIONS (14)
  - Avoidant personality disorder [Unknown]
  - Pain in extremity [Unknown]
  - Cough [Unknown]
  - Anxiety [Unknown]
  - Oedema [Unknown]
  - Fear of injection [Recovered/Resolved]
  - Injection site pain [Recovered/Resolved]
  - Vitamin D decreased [Unknown]
  - Pain [Unknown]
  - Arthralgia [Unknown]
  - Crying [Unknown]
  - Dizziness [Recovered/Resolved with Sequelae]
  - Inappropriate schedule of product administration [Unknown]
  - Lipids increased [Unknown]

NARRATIVE: CASE EVENT DATE: 20180616
